FAERS Safety Report 4495365-9 (Version None)
Quarter: 2004Q4

REPORT INFORMATION
  Report Type: 
  Country: None (occurrence: None)
  Receive Date: 20041108
  Receipt Date: 20041027
  Transmission Date: 20050328
  Serious: Yes (Hospitalization)
  Sender: FDA-Public Use
  Company Number: DK-BRISTOL-MYERS SQUIBB COMPANY-12746251

PATIENT
  Age: 79 Year
  Sex: Female
  Weight: 58 kg

DRUGS (6)
  1. CISPLATIN [Suspect]
     Indication: BLADDER CANCER
     Dosage: START DATE:  14-JUN-2004  CUMULATIVE DOSE:  223 MG
     Dates: start: 20040720, end: 20040720
  2. GEMCITABINE [Suspect]
     Indication: BLADDER CANCER
     Dosage: START DATE:  12-JUN-2004.  CUMULATIVE DOSE: 6440 MG
     Dates: start: 20040727, end: 20040727
  3. DIPYRIDAMOLE + ASPIRIN [Concomitant]
  4. ALENDRONATE SODIUM [Concomitant]
  5. PARACETAMOL [Concomitant]
     Dates: start: 20040601
  6. DICLOFENAC [Concomitant]
     Dates: start: 20040601

REACTIONS (3)
  - CATHETER RELATED INFECTION [None]
  - CULTURE URINE POSITIVE [None]
  - INFECTION [None]
